FAERS Safety Report 4821762-5 (Version None)
Quarter: 2005Q4

REPORT INFORMATION
  Report Type: 
  Country: None (occurrence: None)
  Receive Date: 20051103
  Receipt Date: 20051019
  Transmission Date: 20060501
  Serious: Yes (Death)
  Sender: FDA-Public Use
  Company Number: 2005S1010341

PATIENT
  Age: 68 Year
  Sex: Female

DRUGS (7)
  1. CLOZAPINE [Suspect]
     Dosage: SEE IMAGE
     Route: 048
     Dates: start: 20050607, end: 20050919
  2. CLOZAPINE [Suspect]
     Dosage: SEE IMAGE
     Route: 048
     Dates: start: 20050920, end: 20050923
  3. SERTRALIDE  HYDROCHLORIDE [Concomitant]
  4. LORAZEPAM [Concomitant]
  5. CLONAZEPAM [Concomitant]
  6. RISPERIDONE [Concomitant]
  7. MIRTAZAPINE [Concomitant]

REACTIONS (1)
  - DEATH [None]
